FAERS Safety Report 5839125-2 (Version None)
Quarter: 2008Q3

REPORT INFORMATION
  Report Type: 
  Country: None (occurrence: None)
  Receive Date: 20080808
  Receipt Date: 20080801
  Transmission Date: 20090109
  Serious: Yes (Other)
  Sender: FDA-Public Use
  Company Number: US-PFIZER INC-2008019884

PATIENT
  Sex: Male

DRUGS (2)
  1. LIPITOR [Suspect]
  2. POTASSIUM CHLORIDE [Concomitant]

REACTIONS (8)
  - BACK PAIN [None]
  - BEDRIDDEN [None]
  - HEPATIC FUNCTION ABNORMAL [None]
  - HEPATITIS [None]
  - LIVER INJURY [None]
  - MEDICATION RESIDUE [None]
  - MYALGIA [None]
  - PAIN [None]
